FAERS Safety Report 8927330 (Version 2)
Quarter: 2012Q4

REPORT INFORMATION
  Report Type: 
  Country: US (occurrence: US)
  Receive Date: 20121127
  Receipt Date: 20121219
  Transmission Date: 20130627
  Serious: Yes (Other)
  Sender: FDA-Public Use
  Company Number: US-VERTEX PHARMACEUTICAL INC.-2012-024752

PATIENT
  Age: 64 None
  Sex: Male
  Weight: 90.7 kg

DRUGS (7)
  1. VX-950 (TELAPREVIR) [Suspect]
     Indication: HEPATITIS C
     Dosage: 750 mg, tid
     Route: 048
     Dates: start: 20121025
  2. PEGASYS [Suspect]
     Indication: HEPATITIS C
     Dosage: 180 ?g, qw
     Route: 058
     Dates: start: 20121025
  3. RIBAVIRIN [Suspect]
     Indication: HEPATITIS C
     Dosage: 600 mg, bid
     Route: 048
     Dates: start: 20121025
  4. LACTULOSE [Concomitant]
     Indication: CONSTIPATION
     Dosage: UNK, qd
     Route: 048
  5. BUPROPION [Concomitant]
     Dosage: 75 mg, UNK
     Route: 048
  6. METRONIDAZOL                       /00012501/ [Concomitant]
     Dosage: 250 mg, UNK
     Route: 048
  7. LISINOPRIL [Concomitant]
     Dosage: 20 mg, UNK

REACTIONS (3)
  - Rash papulosquamous [Not Recovered/Not Resolved]
  - Oedema peripheral [Unknown]
  - Haemorrhoidal haemorrhage [Not Recovered/Not Resolved]
